FAERS Safety Report 19013425 (Version 1)
Quarter: 2021Q1

REPORT INFORMATION
  Report Type: Spontaneous
  Country: DE (occurrence: DE)
  Receive Date: 20210316
  Receipt Date: 20210316
  Transmission Date: 20210420
  Serious: Yes (Congenital Anomaly, Other)
  Sender: FDA-Public Use
  Company Number: DE-SA-2021SA076504

PATIENT
  Sex: Female
  Weight: 3.36 kg

DRUGS (5)
  1. FEXOFENADINE HYDROCHLORIDE. [Suspect]
     Active Substance: FEXOFENADINE HYDROCHLORIDE
     Dosage: 180 [MG / D (IF NECESSARY, APPROX. EVERY 3 D)] / EVERY OTHER DAY OR EVERY 3RD DAY.
     Route: 064
  2. FOSTER [Concomitant]
     Active Substance: BECLOMETHASONE\FORMOTEROL
     Dosage: MOTHER DOSE: 200 [UG / D (2 STROKES / D)] / 12 [UG / D]
     Route: 064
  3. ALLERGOSPASMIN [Concomitant]
     Dosage: MOTHER DOSE :1 [MG/D (1?0?1) ] / 2 [MG/D ]
     Route: 064
  4. BECLOMETASONE [Concomitant]
     Active Substance: BECLOMETHASONE DIPROPIONATE
     Dosage: 50 UG MOTHER DOSE
     Route: 064
  5. INFLUVAC TETRA [Concomitant]
     Active Substance: INFLUENZA VIRUS VACCINE QUADRIVALENT TYPE A+B
     Dosage: MOTHER DOSE: ONCE BETWEEN GW 15 AND 19 1/7.
     Route: 064

REACTIONS (3)
  - Foetal exposure during pregnancy [Unknown]
  - Ventricular septal defect [Unknown]
  - Atrial septal defect [Unknown]

NARRATIVE: CASE EVENT DATE: 20190227
